FAERS Safety Report 10551378 (Version 3)
Quarter: 2015Q2

REPORT INFORMATION
  Report Type: Spontaneous
  Country: US (occurrence: None)
  Receive Date: 20141020
  Receipt Date: 20150420
  Transmission Date: 20150821
  Serious: No
  Sender: FDA-Public Use
  Company Number: AEGR000702

PATIENT
  Age: 77 Year
  Sex: Female
  Weight: 68.9 kg

DRUGS (1)
  1. JUXTAPID [Suspect]
     Active Substance: LOMITAPIDE MESYLATE
     Indication: TYPE IIA HYPERLIPIDAEMIA
     Route: 048
     Dates: start: 20140803, end: 201409

REACTIONS (6)
  - Drug ineffective [None]
  - Weight decreased [None]
  - Therapy cessation [None]
  - Arthralgia [None]
  - Constipation [None]
  - Dysgeusia [None]

NARRATIVE: CASE EVENT DATE: 2014
